FAERS Safety Report 6747926-1 (Version None)
Quarter: 2010Q2

REPORT INFORMATION
  Report Type: 
  Country: None (occurrence: None)
  Receive Date: 20100528
  Receipt Date: 20100517
  Transmission Date: 20101027
  Serious: Yes (Hospitalization)
  Sender: FDA-Public Use
  Company Number: IT-ELI_LILLY_AND_COMPANY-IT201005004324

PATIENT
  Sex: Male

DRUGS (7)
  1. GEMZAR [Suspect]
     Indication: RENAL CANCER
     Dosage: 1910 MG/CYCLE (DAY 1, 8, 21), UNK
     Route: 042
     Dates: start: 20100217, end: 20100429
  2. OXALIPLATIN [Concomitant]
     Indication: RENAL CANCER
     Dosage: 180 MG (DAY 1, 21), OTHER
     Route: 042
     Dates: start: 20100217, end: 20100429
  3. ONDANSETRON [Concomitant]
     Dosage: 12 MG, UNKNOWN
     Route: 065
  4. CHLORPHENAMINE [Concomitant]
     Dosage: 1 D/F, UNKNOWN
     Route: 030
  5. SORAFENIB [Concomitant]
     Indication: HYPERSENSITIVITY
     Dosage: UNK, UNKNOWN
     Route: 065
  6. SUNITINIB MALATE [Concomitant]
     Indication: HYPERSENSITIVITY
     Dosage: UNK, UNKNOWN
     Route: 065
  7. PROLEUKIN [Concomitant]
     Indication: HYPERSENSITIVITY
     Dosage: UNK, UNKNOWN
     Route: 065

REACTIONS (6)
  - ASTHENIA [None]
  - BLOOD CREATININE INCREASED [None]
  - DECREASED APPETITE [None]
  - POLLAKIURIA [None]
  - THROMBOCYTOPENIA [None]
  - TRANSAMINASES INCREASED [None]
